FAERS Safety Report 9304051 (Version 1)
Quarter: 2013Q1

REPORT INFORMATION
  Report Type: Spontaneous
  Country: US (occurrence: None)
  Receive Date: 20130128
  Receipt Date: 20130128
  Transmission Date: 20140127
  Serious: Yes (Hospitalization)
  Sender: FDA-Public Use
  Company Number: USA/USA/13/0027478

PATIENT
  Age: 76 Year
  Sex: Female
  Weight: 80.74 kg

DRUGS (3)
  1. RANITIDINE HYDROCHLORIDE(RANITIDINE HYDROCHLORIDE) [Suspect]
     Indication: GASTROOESOPHAGEAL REFLUX DISEASE
     Route: 048
     Dates: start: 2012
  2. EQUATE NIGHTTIME SLEEP AID [Suspect]
     Indication: INSOMNIA
  3. ARMOUR THYROID (THYROID) [Concomitant]

REACTIONS (7)
  - Hypersensitivity [None]
  - Reaction to drug excipients [None]
  - Vomiting [None]
  - Malaise [None]
  - Dizziness [None]
  - Balance disorder [None]
  - Abdominal discomfort [None]
